FAERS Safety Report 4881364-1 (Version None)
Quarter: 2005Q4

REPORT INFORMATION
  Report Type: 
  Country: None (occurrence: None)
  Receive Date: 20051212
  Receipt Date: 20051025
  Transmission Date: 20060501
  Serious: No
  Sender: FDA-Public Use
  Company Number: 2005-01790

PATIENT
  Age: 73 Year
  Sex: Male
  Weight: 98.4 kg

DRUGS (5)
  1. VELCADE [Suspect]
     Indication: MULTIPLE MYELOMA
     Dates: start: 20050401
  2. ALTACE [Concomitant]
  3. LIPITOR [Concomitant]
  4. PRILOSEC [Concomitant]
  5. TENORMIN [Concomitant]

REACTIONS (1)
  - RASH PAPULAR [None]
